FAERS Safety Report 7536536-4 (Version None)
Quarter: 2011Q2

REPORT INFORMATION
  Report Type: 
  Country: None (occurrence: None)
  Receive Date: 20110609
  Receipt Date: 20110527
  Transmission Date: 20111010
  Serious: Yes (Other)
  Sender: FDA-Public Use
  Company Number: US-RB-025881-11

PATIENT
  Age: 52 Year
  Sex: Male

DRUGS (1)
  1. DELSYM [Suspect]
     Route: 048

REACTIONS (3)
  - SYNCOPE [None]
  - DIZZINESS [None]
  - CONTUSION [None]
